FAERS Safety Report 20621284 (Version 1)
Quarter: 2022Q1

REPORT INFORMATION
  Report Type: Report from Study
  Country: DE (occurrence: DE)
  Receive Date: 20220322
  Receipt Date: 20220322
  Transmission Date: 20220424
  Serious: Yes (Other)
  Sender: FDA-Public Use
  Company Number: DE-MYLANLABS-2022M1021253

PATIENT
  Age: 17 Year
  Sex: Female

DRUGS (4)
  1. SERTRALINE [Interacting]
     Active Substance: SERTRALINE HYDROCHLORIDE
     Indication: Antipsychotic therapy
     Dosage: 25 MILLIGRAM, QD
     Route: 065
  2. ACETYLCYSTEINE [Interacting]
     Active Substance: ACETYLCYSTEINE
     Indication: Dermatillomania
     Dosage: 600 MILLIGRAM, QD; AS A SINGLE DAILY DOSE
     Route: 065
  3. ACETYLCYSTEINE [Interacting]
     Active Substance: ACETYLCYSTEINE
     Indication: Prader-Willi syndrome
     Dosage: UNK, QD,  INCREASED UP TO 1200MG DAILY
     Route: 065
  4. ACETYLCYSTEINE [Interacting]
     Active Substance: ACETYLCYSTEINE
     Indication: Psychiatric symptom

REACTIONS (2)
  - Drug ineffective [Unknown]
  - Drug interaction [Unknown]
